FAERS Safety Report 8469734-6 (Version None)
Quarter: 2012Q2

REPORT INFORMATION
  Report Type: 
  Country: None (occurrence: None)
  Receive Date: 20120626
  Receipt Date: 20120620
  Transmission Date: 20120825
  Serious: No
  Sender: FDA-Public Use
  Company Number: US-PFIZER INC-2012149401

PATIENT
  Sex: Female
  Weight: 13.605 kg

DRUGS (2)
  1. CHILDREN'S ADVIL [Suspect]
     Indication: PYREXIA
     Dosage: ONE TEASPOON
     Route: 048
     Dates: start: 20120501
  2. CHILDREN'S ADVIL [Suspect]
     Dosage: UNK
     Route: 048

REACTIONS (6)
  - RASH [None]
  - ERYTHEMA [None]
  - HYPERSENSITIVITY [None]
  - PRURITUS [None]
  - ABDOMINAL DISTENSION [None]
  - SWELLING [None]
